FAERS Safety Report 18146806 (Version 2)
Quarter: 2020Q3

REPORT INFORMATION
  Report Type: Spontaneous
  Country: US (occurrence: US)
  Receive Date: 20200813
  Receipt Date: 20200827
  Transmission Date: 20201103
  Serious: Yes (Other)
  Sender: FDA-Public Use
  Company Number: US-TEVA-2020-US-1812712

PATIENT
  Sex: Female

DRUGS (9)
  1. ACYCLOVIR. [Concomitant]
     Active Substance: ACYCLOVIR
     Indication: HERPES SIMPLEX
     Route: 042
  2. VASELINE GAUZE [Concomitant]
     Indication: WOUND TREATMENT
     Route: 065
  3. BETAMETHASONE. [Suspect]
     Active Substance: BETAMETHASONE
     Indication: ADRENOCORTICAL STEROID THERAPY
     Route: 061
  4. DICLOAXICILLIN [DICLOXACILLIN] [Suspect]
     Active Substance: DICLOXACILLIN
     Indication: MASTITIS
     Route: 065
  5. AUGMENTIN [Suspect]
     Active Substance: AMOXICILLIN\CLAVULANATE POTASSIUM
     Indication: MASTITIS
     Route: 065
  6. MUPIROCIN. [Concomitant]
     Active Substance: MUPIROCIN
     Indication: HERPES SIMPLEX
     Route: 061
  7. HYDROGEL [Suspect]
     Active Substance: ALUMINUM HYDROXIDE
     Indication: WOUND TREATMENT
     Dosage: USED FOR 6 TO 8 WEEKS
     Route: 065
  8. AQUAPHOR [Suspect]
     Active Substance: PETROLATUM
     Indication: WOUND TREATMENT
     Dosage: USED FOR 6 TO 8 WEEKS
     Route: 065
  9. ACYCLOVIR. [Concomitant]
     Active Substance: ACYCLOVIR
     Indication: HERPES SIMPLEX
     Route: 048

REACTIONS (4)
  - Paradoxical drug reaction [Recovered/Resolved]
  - Maternal exposure during breast feeding [Unknown]
  - Therapy non-responder [Unknown]
  - Impaired healing [Recovered/Resolved]
